FAERS Safety Report 4944895-1 (Version None)
Quarter: 2006Q1

REPORT INFORMATION
  Report Type: 
  Country: None (occurrence: None)
  Receive Date: 20060118
  Receipt Date: 20050706
  Transmission Date: 20060701
  Serious: Yes (Disabling)
  Sender: FDA-Public Use
  Company Number: 2005EN000014

PATIENT
  Sex: Female

DRUGS (1)
  1. ABELCET [Suspect]
     Indication: CRYPTOCOCCOSIS
     Dosage: 5 MG/KG; QD; IV
     Route: 042
     Dates: start: 20050705, end: 20050706

REACTIONS (1)
  - DEAFNESS [None]
